FAERS Safety Report 10216193 (Version 1)
Quarter: 2014Q2

REPORT INFORMATION
  Report Type: Spontaneous
  Country: US (occurrence: None)
  Receive Date: 20140603
  Receipt Date: 20140603
  Transmission Date: 20141212
  Serious: Yes (Life-Threatening, Hospitalization, Disabling)
  Sender: FDA-Public Use
  Company Number: None

PATIENT
  Age: 58 Year
  Sex: Male
  Weight: 138.35 kg

DRUGS (1)
  1. DEPO TESTOSTERONE 200 MG/ML [Suspect]
     Indication: PITUITARY TUMOUR
     Dosage: APPROX. 2+ YEARS, 150 MG, EVERY 14 DAYS, INTO THE MUSCLE?
     Route: 030

REACTIONS (10)
  - Malaise [None]
  - Fatigue [None]
  - Nausea [None]
  - Abdominal pain upper [None]
  - Swelling [None]
  - Hypertension [None]
  - Chest pain [None]
  - General physical health deterioration [None]
  - Faecal vomiting [None]
  - Biliary tract disorder [None]
